FAERS Safety Report 7612760-7 (Version None)
Quarter: 2011Q3

REPORT INFORMATION
  Report Type: 
  Country: None (occurrence: None)
  Receive Date: 20110708
  Receipt Date: 20110701
  Transmission Date: 20111222
  Serious: Yes (Other)
  Sender: FDA-Public Use
  Company Number: WAES 1106DEU00002

PATIENT
  Age: 67 Year
  Sex: Male

DRUGS (2)
  1. VALPROATE SODIUM [Concomitant]
  2. EMEND [Suspect]
     Indication: PROPHYLAXIS OF NAUSEA AND VOMITING
     Dosage: 125 MG, PO
     Route: 048
     Dates: start: 20110526, end: 20110527

REACTIONS (3)
  - CONVULSION [None]
  - NAUSEA [None]
  - VOMITING [None]
